FAERS Safety Report 6771867-7 (Version None)
Quarter: 2010Q2

REPORT INFORMATION
  Report Type: 
  Country: None (occurrence: None)
  Receive Date: 20100616
  Receipt Date: 20100126
  Transmission Date: 20101027
  Serious: No
  Sender: FDA-Public Use
  Company Number: US-ASTRAZENECA-2010SE03560

PATIENT
  Age: 24384 Day
  Sex: Female
  Weight: 52.2 kg

DRUGS (4)
  1. ENTOCORT EC [Suspect]
     Route: 048
     Dates: start: 20100121, end: 20100101
  2. PAXIL [Concomitant]
  3. SYNTHROID [Concomitant]
  4. LIPITOR [Concomitant]

REACTIONS (4)
  - BLOOD PRESSURE INCREASED [None]
  - CONFUSIONAL STATE [None]
  - FEELING ABNORMAL [None]
  - NERVOUSNESS [None]
